FAERS Safety Report 4426593-6 (Version None)
Quarter: 2004Q3

REPORT INFORMATION
  Report Type: 
  Country: None (occurrence: None)
  Receive Date: 20040811
  Receipt Date: 20040314
  Transmission Date: 20050211
  Serious: Yes (Hospitalization)
  Sender: FDA-Public Use
  Company Number: 200210393BVD

PATIENT
  Sex: Female

DRUGS (3)
  1. AVELOX [Suspect]
     Indication: BRONCHOPNEUMONIA
     Dosage: ORAL
     Route: 048
     Dates: start: 20020212, end: 20020219
  2. AVELOX [Suspect]
     Indication: PYREXIA
     Dosage: ORAL
     Route: 048
     Dates: start: 20020212, end: 20020219
  3. EQUILIBRIN ^AVENTIS PHARMA^ [Concomitant]

REACTIONS (9)
  - ABNORMAL BEHAVIOUR [None]
  - AFFECTIVE DISORDER [None]
  - ANXIETY [None]
  - EUPHORIC MOOD [None]
  - INSOMNIA [None]
  - LOGORRHOEA [None]
  - MANIA [None]
  - PSYCHOMOTOR HYPERACTIVITY [None]
  - TENSION [None]
